FAERS Safety Report 7069680-9 (Version None)
Quarter: 2010Q4

REPORT INFORMATION
  Report Type: 
  Country: None (occurrence: None)
  Receive Date: 20101028
  Receipt Date: 20100517
  Transmission Date: 20110411
  Serious: No
  Sender: FDA-Public Use
  Company Number: US-WYE-H15212710

PATIENT
  Age: 76 Year
  Sex: Female

DRUGS (1)
  1. EFFEXOR [Suspect]
     Indication: DEPRESSION
     Dosage: UNKNOWN, THEN WAS WEANED OFF
     Dates: end: 20100401

REACTIONS (3)
  - AMNESIA [None]
  - DRUG WITHDRAWAL SYNDROME [None]
  - SOMNOLENCE [None]
